FAERS Safety Report 4803311-0 (Version None)
Quarter: 2005Q3

REPORT INFORMATION
  Report Type: 
  Country: None (occurrence: None)
  Receive Date: 20050929
  Receipt Date: 20050812
  Transmission Date: 20060218
  Serious: Yes (Hospitalization)
  Sender: FDA-Public Use
  Company Number: 05P-163-0308209-00

PATIENT
  Age: 52 Year
  Sex: Female

DRUGS (11)
  1. HUMIRA [Suspect]
     Indication: RHEUMATOID ARTHRITIS
     Dosage: 40 MG, 1 IN 2 WK, SUBCUTANEOUS
     Route: 058
     Dates: start: 20050712, end: 20050801
  2. PREDNISONE [Concomitant]
  3. LEVOTHYROXINE SODIUM [Concomitant]
  4. ALLEGRA [Concomitant]
  5. GLUCOSAMINE [Concomitant]
  6. RANITIDINE [Concomitant]
  7. GLIPIZIDE [Concomitant]
  8. CALCIUM GLUCONATE [Concomitant]
  9. SULINDAC [Concomitant]
  10. MULTI-VITAMINS [Concomitant]
  11. OXYCOCET [Concomitant]

REACTIONS (1)
  - CELLULITIS [None]
